FAERS Safety Report 8860748 (Version 3)
Quarter: 2012Q4

REPORT INFORMATION
  Report Type: 
  Country: JP (occurrence: JP)
  Receive Date: 20121025
  Receipt Date: 20121217
  Transmission Date: 20130627
  Serious: Yes (Hospitalization)
  Sender: FDA-Public Use
  Company Number: JP-B.I. PHARMACEUTICALS,INC./RIDGEFIELD-2012-BP-25190NB

PATIENT
  Age: 78 Year
  Sex: Male
  Weight: 51 kg

DRUGS (10)
  1. TRAZENTA [Suspect]
     Indication: DIABETES MELLITUS
     Dosage: 5 mg
     Route: 048
     Dates: start: 20120928, end: 20121002
  2. HALCION [Concomitant]
     Dosage: 0.25 mg
     Route: 048
  3. ZYLORIC [Concomitant]
     Dosage: 100 mg
     Route: 048
  4. RIMATIL [Concomitant]
     Dosage: 200 mg
     Route: 048
  5. ITOROL [Concomitant]
     Dosage: 40 mg
     Route: 048
  6. VOGLIBOSE [Concomitant]
     Dosage: 0.9 mg
     Route: 048
  7. BAYASPIRIN [Concomitant]
     Dosage: 100 mg
     Route: 048
  8. ENALAPRIL [Concomitant]
     Dosage: 5 mg
     Route: 048
  9. MAINTATE [Concomitant]
     Dosage: 2.5 mg
     Route: 048
  10. LASIX [Concomitant]
     Dosage: 40 mg
     Route: 048

REACTIONS (2)
  - Renal impairment [Not Recovered/Not Resolved]
  - Hepatic function abnormal [Recovered/Resolved]
